FAERS Safety Report 4462903-1 (Version None)
Quarter: 2004Q3

REPORT INFORMATION
  Report Type: 
  Country: None (occurrence: None)
  Receive Date: 20040927
  Receipt Date: 20040916
  Transmission Date: 20050211
  Serious: Yes (Hospitalization)
  Sender: FDA-Public Use
  Company Number: 2004-09-1029

PATIENT
  Sex: Female

DRUGS (1)
  1. INTRON A [Suspect]
     Indication: THROMBOCYTHAEMIA

REACTIONS (6)
  - ABDOMINAL PAIN [None]
  - ANTIPHOSPHOLIPID SYNDROME [None]
  - ASCITES [None]
  - BUDD-CHIARI SYNDROME [None]
  - HEPATOMEGALY [None]
  - PHLEBOTHROMBOSIS [None]
